FAERS Safety Report 24265657 (Version 2)
Quarter: 2024Q3

REPORT INFORMATION
  Report Type: Report from Study
  Country: GB (occurrence: GB)
  Receive Date: 20240829
  Receipt Date: 20240905
  Transmission Date: 20241016
  Serious: Yes (Hospitalization, Other)
  Sender: ABBVIE
  Company Number: GB-ABBVIE-5898057

PATIENT
  Sex: Female

DRUGS (1)
  1. SKYRIZI [Suspect]
     Active Substance: RISANKIZUMAB-RZAA
     Indication: Crohn^s disease
     Dosage: 1.00 EA?FORM STRENGTH: 360 MILIGRAMS
     Route: 058
     Dates: start: 20240222

REACTIONS (5)
  - Intestinal obstruction [Not Recovered/Not Resolved]
  - Asthenia [Not Recovered/Not Resolved]
  - Feeding disorder [Not Recovered/Not Resolved]
  - Crohn^s disease [Unknown]
  - Wound infection [Unknown]

NARRATIVE: CASE EVENT DATE: 20240101
